FAERS Safety Report 12340294 (Version 1)
Quarter: 2016Q2

REPORT INFORMATION
  Report Type: Spontaneous
  Country: NL (occurrence: NL)
  Receive Date: 20160506
  Receipt Date: 20160506
  Transmission Date: 20160815
  Serious: Yes (Disabling)
  Sender: FDA-Public Use
  Company Number: NL-TEVA-656975ACC

PATIENT
  Age: 37 Year
  Sex: Male
  Weight: 100 kg

DRUGS (1)
  1. DIAZEPAM PCH TABLET 2MG [Suspect]
     Active Substance: DIAZEPAM
     Indication: ANXIETY
     Dosage: 3 DOSAGE FORMS DAILY; THREE TIMES DAILY ONE PIECE; DAILY DOSE: 3DOSAGE FORMS
     Route: 048
     Dates: start: 20140101

REACTIONS (2)
  - Therapeutic response unexpected [Unknown]
  - Drug ineffective [Unknown]

NARRATIVE: CASE EVENT DATE: 20160401
